FAERS Safety Report 23070850 (Version 3)
Quarter: 2023Q4

REPORT INFORMATION
  Report Type: Spontaneous
  Country: US (occurrence: US)
  Receive Date: 20231016
  Receipt Date: 20231024
  Transmission Date: 20240110
  Serious: No
  Sender: FDA-Public Use
  Company Number: US-PFIZER INC-202300327553

PATIENT
  Sex: Female

DRUGS (2)
  1. PAXLOVID [Suspect]
     Active Substance: NIRMATRELVIR\RITONAVIR
     Indication: COVID-19 treatment
     Dosage: [NIRMATRELVIR 300 MG]/[RITONAVIR 100 MG]; 2X/DAY
  2. PAXLOVID [Suspect]
     Active Substance: NIRMATRELVIR\RITONAVIR
     Dosage: [NIRMATRELVIR 300 MG]/[RITONAVIR 100 MG]; 1X/DAY

REACTIONS (14)
  - COVID-19 [Unknown]
  - Disease recurrence [Unknown]
  - Gastrointestinal disorder [Unknown]
  - Somnambulism [Unknown]
  - Disorientation [Unknown]
  - Arthralgia [Unknown]
  - Contusion [Unknown]
  - Blood pressure increased [Not Recovered/Not Resolved]
  - Memory impairment [Unknown]
  - Faeces discoloured [Not Recovered/Not Resolved]
  - Erythema [Unknown]
  - Blood blister [Unknown]
  - Off label use [Unknown]
  - Inappropriate schedule of product administration [Unknown]
